FAERS Safety Report 7546959-5 (Version None)
Quarter: 2011Q2

REPORT INFORMATION
  Report Type: 
  Country: None (occurrence: None)
  Receive Date: 20110607
  Receipt Date: 20110523
  Transmission Date: 20111010
  Serious: Yes (Hospitalization, Disabling)
  Sender: FDA-Public Use
  Company Number: 2011AP000700

PATIENT
  Age: 85 Year
  Sex: Female

DRUGS (16)
  1. CALCIUM CARBONATE [Concomitant]
  2. CLARITHROMYCIN [Suspect]
     Indication: LOWER RESPIRATORY TRACT INFECTION
     Dosage: 500 MG; BID PO
     Route: 048
     Dates: start: 20110323, end: 20110324
  3. CODEINE SULFATE [Concomitant]
  4. SODIUM ALGINATE (SODIUM ALGINATE) [Concomitant]
  5. POTASSIUM BICARBONATE (POTASSIUM BICARBONATE) [Concomitant]
  6. METRONIDAZOLE [Suspect]
     Indication: LOWER RESPIRATORY TRACT INFECTION
     Dosage: 400 MG; TID PO
     Route: 048
     Dates: start: 20110323, end: 20110324
  7. AMITRIPTYLINE HCL [Concomitant]
  8. ALUMINIUM HYDROXIDE (ALUMINIUM HYDROXIDE) [Concomitant]
  9. ACETAMINOPHEN [Concomitant]
  10. CYCLIZINE (CYCLIZINE) [Concomitant]
  11. FLUCONAZOLE [Concomitant]
  12. LISINOPRIL [Concomitant]
  13. SODIUM BICARBONATE IN PLASTIC CONTAINER [Concomitant]
  14. ESOMEPRAZOLE (ESOMEPRAZOLE) [Concomitant]
  15. METOCLOPRAMIDE [Concomitant]
  16. NYSTATIN [Concomitant]

REACTIONS (3)
  - DELIRIUM [None]
  - ENCEPHALITIS [None]
  - CONFUSIONAL STATE [None]
